FAERS Safety Report 25141082 (Version 1)
Quarter: 2025Q2

REPORT INFORMATION
  Report Type: Spontaneous
  Country: US (occurrence: None)
  Receive Date: 20250330
  Receipt Date: 20250330
  Transmission Date: 20250716
  Serious: Yes (Other)
  Sender: FDA-CTU
  Company Number: None

PATIENT
  Age: 67 Year
  Sex: Female
  Weight: 49.5 kg

DRUGS (1)
  1. CHILDRENS ZYRTEC ALLERGY [Suspect]
     Active Substance: CETIRIZINE HYDROCHLORIDE
     Indication: Urticaria chronic
     Dosage: 1 DROP DAILY ORAL
     Route: 048
     Dates: start: 20241008, end: 20250328

REACTIONS (6)
  - Withdrawal syndrome [None]
  - Urticaria [None]
  - Rash erythematous [None]
  - Pruritus [None]
  - Physical product label issue [None]
  - Drug dependence [None]

NARRATIVE: CASE EVENT DATE: 20250329
